FAERS Safety Report 5943707-7 (Version None)
Quarter: 2008Q4

REPORT INFORMATION
  Report Type: 
  Country: None (occurrence: None)
  Receive Date: 20081106
  Receipt Date: 20081028
  Transmission Date: 20090506
  Serious: Yes (Death)
  Sender: FDA-Public Use
  Company Number: US-JNJFOC-20081007125

PATIENT
  Age: 40 Year
  Sex: Female
  Weight: 63.5 kg

DRUGS (12)
  1. DURAGESIC-100 [Suspect]
     Indication: FIBROMYALGIA
     Route: 062
  2. DURAGESIC-100 [Suspect]
     Indication: PAIN
     Route: 062
  3. OXYCODONE HCL [Interacting]
     Indication: DRUG USE FOR UNKNOWN INDICATION
  4. MEPROBAMATE [Concomitant]
  5. CAFFEINE [Concomitant]
  6. SOMA [Concomitant]
  7. CITALOPRAM [Concomitant]
  8. OXYMORPHONE HCL [Concomitant]
  9. PROMETHAZINE [Concomitant]
  10. PAXIL [Concomitant]
  11. KLONOPIN [Concomitant]
  12. DETROL [Concomitant]

REACTIONS (2)
  - DRUG INTERACTION [None]
  - DRUG TOXICITY [None]
